FAERS Safety Report 12177510 (Version 1)
Quarter: 2016Q1

REPORT INFORMATION
  Report Type: Spontaneous
  Country: US (occurrence: US)
  Receive Date: 20160314
  Receipt Date: 20160314
  Transmission Date: 20160526
  Serious: Yes (Other)
  Sender: FDA-Public Use
  Company Number: US-ROXANE LABORATORIES, INC.-2016-RO-00475RO

PATIENT
  Sex: Female

DRUGS (1)
  1. PREDNISONE TABLETS USP, 20MG [Suspect]
     Active Substance: PREDNISONE
     Indication: HYPERSENSITIVITY
     Dosage: 40 MG
     Route: 065

REACTIONS (1)
  - Blood glucose increased [Recovered/Resolved]
